FAERS Safety Report 24683480 (Version 1)
Quarter: 2024Q4

REPORT INFORMATION
  Report Type: Spontaneous
  Country: EG (occurrence: EG)
  Receive Date: 20241201
  Receipt Date: 20241201
  Transmission Date: 20250114
  Serious: Yes (Hospitalization, Other)
  Sender: NOVO NORDISK
  Company Number: EG-NOVOPROD-1321922

PATIENT
  Sex: Female
  Weight: 75 kg

DRUGS (6)
  1. INSULIN HUMAN [Suspect]
     Active Substance: INSULIN HUMAN
     Dosage: 30 IU, QD (20 IU AND 10 IU)
     Route: 058
     Dates: start: 2023
  2. INSULIN HUMAN [Suspect]
     Active Substance: INSULIN HUMAN
     Indication: Type 2 diabetes mellitus
     Dosage: 60 IU, QD (40 IU BEFORE BREAKFAST AND 20 IU BEFORE DINNER)
     Route: 058
     Dates: start: 2019
  3. CARBIMAZOLE [Concomitant]
     Active Substance: CARBIMAZOLE
     Indication: Hyperthyroidism
     Dosage: 1 TABLET DAILY
     Route: 048
     Dates: start: 2020, end: 20230304
  4. INDERAL [Concomitant]
     Active Substance: PROPRANOLOL HYDROCHLORIDE
     Indication: Cardiac disorder
     Dosage: 1 TABLET DAILY
     Route: 048
     Dates: start: 2020, end: 20230304
  5. DIBAVALLY PLUS [Concomitant]
     Indication: Vitamin supplementation
     Dosage: 1TABLET BEFORE BREAKFAST AND 1 TABLET AFTER DINNER
     Route: 048
     Dates: start: 202304
  6. WINDIPINE [Concomitant]
     Indication: Hypertension
     Dosage: 10 MG, QD
     Route: 048
     Dates: start: 2020

REACTIONS (4)
  - Hyperthyroidism [Unknown]
  - Skin exfoliation [Not Recovered/Not Resolved]
  - Skin discolouration [Not Recovered/Not Resolved]
  - Hyperglycaemia [Not Recovered/Not Resolved]
